FAERS Safety Report 25148314 (Version 2)
Quarter: 2025Q2

REPORT INFORMATION
  Report Type: Spontaneous
  Country: IN (occurrence: IN)
  Receive Date: 20250402
  Receipt Date: 20250428
  Transmission Date: 20250717
  Serious: Yes (Other)
  Sender: ROCHE
  Company Number: IN-ROCHE-10000242497

PATIENT
  Sex: Male

DRUGS (7)
  1. VABYSMO [Suspect]
     Active Substance: FARICIMAB-SVOA
     Indication: Retinal vein occlusion
     Route: 065
     Dates: start: 20250225
  2. VABYSMO [Suspect]
     Active Substance: FARICIMAB-SVOA
     Indication: Cystoid macular oedema
  3. VANCOMYCIN [Concomitant]
     Active Substance: VANCOMYCIN
     Route: 050
  4. DECADRON [Concomitant]
     Active Substance: DEXAMETHASONE
  5. CEFTAZIDIME [Concomitant]
     Active Substance: CEFTAZIDIME
  6. MEROPENEM [Concomitant]
     Active Substance: MEROPENEM
     Route: 048
  7. CHLORAMPHENICOL [Concomitant]
     Active Substance: CHLORAMPHENICOL
     Route: 061

REACTIONS (5)
  - Visual impairment [Not Recovered/Not Resolved]
  - Hypopyon [Unknown]
  - Visual acuity reduced [Unknown]
  - Vitrectomy [Unknown]
  - Vitreous haze [Unknown]

NARRATIVE: CASE EVENT DATE: 20250306
